FAERS Safety Report 8000553-0 (Version None)
Quarter: 2011Q4

REPORT INFORMATION
  Report Type: 
  Country: None (occurrence: None)
  Receive Date: 20111222
  Receipt Date: 20111214
  Transmission Date: 20120403
  Serious: Yes (Hospitalization, Other)
  Sender: FDA-Public Use
  Company Number: AU-COVIDIEN/TYCO HEALTHCARE/MALLINCKRODT-T201102265

PATIENT

DRUGS (3)
  1. TRAMAL                             /00599202/ [Concomitant]
     Indication: PAIN
     Dosage: 400 MG, QD
     Dates: end: 20111001
  2. LYRICA [Suspect]
     Indication: PAIN
     Dosage: 150 MG, QD
  3. EXALGO [Suspect]
     Indication: PAIN
     Dosage: 16 MG, UNK
     Route: 048
     Dates: start: 20111001

REACTIONS (2)
  - TOXICITY TO VARIOUS AGENTS [None]
  - MEDICATION ERROR [None]
